FAERS Safety Report 5914179-3 (Version None)
Quarter: 2008Q4

REPORT INFORMATION
  Report Type: 
  Country: None (occurrence: None)
  Receive Date: 20081009
  Receipt Date: 20080929
  Transmission Date: 20090506
  Serious: Yes (Death)
  Sender: FDA-Public Use
  Company Number: GB-ELI_LILLY_AND_COMPANY-GB200809006675

PATIENT
  Age: 23 Year
  Sex: Male

DRUGS (1)
  1. ZYPREXA [Suspect]
     Indication: BORDERLINE PERSONALITY DISORDER
     Dosage: 5 MG, UNK
     Dates: start: 20080505

REACTIONS (1)
  - COMPLETED SUICIDE [None]
